FAERS Safety Report 10605759 (Version 1)
Quarter: 2014Q4

REPORT INFORMATION
  Report Type: Spontaneous
  Country: CH (occurrence: CH)
  Receive Date: 20141125
  Receipt Date: 20141125
  Transmission Date: 20150529
  Serious: Yes (Other)
  Sender: FDA-Public Use
  Company Number: CH-ABBVIE-14K-151-1311313-00

PATIENT
  Age: 43 Year
  Sex: Female
  Weight: 60 kg

DRUGS (2)
  1. MUTAGRIP [Suspect]
     Active Substance: INFLUENZA VIRUS VACCINE
     Indication: PROPHYLACTIC CHEMOTHERAPY
     Dosage: ONE TOTAL
     Route: 030
     Dates: start: 20141110, end: 20141110
  2. HUMIRA [Suspect]
     Active Substance: ADALIMUMAB
     Indication: SPONDYLITIS
     Route: 058
     Dates: start: 2002

REACTIONS (10)
  - Dysaesthesia [Recovering/Resolving]
  - Paraesthesia [Recovering/Resolving]
  - Oedema peripheral [Recovering/Resolving]
  - Hypoaesthesia [Recovering/Resolving]
  - Neuralgic amyotrophy [Recovering/Resolving]
  - Motor dysfunction [Recovering/Resolving]
  - Limb discomfort [Recovering/Resolving]
  - Pain in extremity [Recovering/Resolving]
  - Hyporeflexia [Recovering/Resolving]
  - Monoparesis [Recovering/Resolving]

NARRATIVE: CASE EVENT DATE: 20141110
